FAERS Safety Report 8794410 (Version 2)
Quarter: 2012Q4

REPORT INFORMATION
  Report Type: 
  Country: US (occurrence: US)
  Receive Date: 20120917
  Receipt Date: 20120925
  Transmission Date: 20130627
  Serious: Yes (Other)
  Sender: FDA-Public Use
  Company Number: PHHY2012US079053

PATIENT
  Age: 83 Year
  Sex: Female

DRUGS (5)
  1. ASCRIPTIN - UNKNOWN FORMULA [Suspect]
     Indication: PAIN
     Dosage: 1 DF, QD
     Route: 048
     Dates: start: 2002
  2. LISINOPRIL [Concomitant]
  3. LOVASTATIN [Concomitant]
  4. PLAVIX [Concomitant]
  5. LIPITOR [Concomitant]
     Dates: start: 2012

REACTIONS (2)
  - Myocardial infarction [Unknown]
  - Incorrect drug administration duration [Unknown]
